FAERS Safety Report 11101966 (Version 3)
Quarter: 2017Q1

REPORT INFORMATION
  Report Type: Report from Study
  Country: JP (occurrence: JP)
  Receive Date: 20150510
  Receipt Date: 20170206
  Transmission Date: 20170428
  Serious: Yes (Other)
  Sender: FDA-Public Use
  Company Number: JP-AMGEN-JPNNI2015045073

PATIENT
  Age: 71 Year
  Sex: Male

DRUGS (21)
  1. 5-FU                               /00098801/ [Concomitant]
     Active Substance: FLUOROURACIL
     Indication: COLON CANCER
     Dosage: 400 MG/M2, Q2WK
     Route: 040
     Dates: start: 20141208, end: 20141225
  2. 5-FU                               /00098801/ [Concomitant]
     Active Substance: FLUOROURACIL
     Dosage: 2400 MG/M2, Q2WEEKS
     Route: 041
     Dates: start: 20150212, end: 20150212
  3. 5-FU                               /00098801/ [Concomitant]
     Active Substance: FLUOROURACIL
     Dosage: 2400 MG/M2, Q2WEEKS
     Route: 041
     Dates: start: 20150305, end: 20150305
  4. 5-FU                               /00098801/ [Concomitant]
     Active Substance: FLUOROURACIL
     Dosage: 400 MG/M2, Q2WEEKS
     Route: 040
     Dates: start: 20150122, end: 20150122
  5. 5-FU                               /00098801/ [Concomitant]
     Active Substance: FLUOROURACIL
     Dosage: 2400 MG/M2, Q2WEEKS
     Route: 041
     Dates: start: 20150122, end: 20150122
  6. OXALIPLATIN. [Concomitant]
     Active Substance: OXALIPLATIN
     Indication: COLON CANCER
     Dosage: 85 MG/M2, Q2WEEKS
     Route: 041
     Dates: start: 20141208, end: 20141225
  7. CALCIUM LEVOFOLINATE [Concomitant]
     Active Substance: LEVOLEUCOVORIN CALCIUM
     Indication: COLON CANCER
     Dosage: 200 MG/M2, Q2WEEKS
     Route: 041
     Dates: start: 20141208, end: 20141225
  8. CALCIUM LEVOFOLINATE [Concomitant]
     Active Substance: LEVOLEUCOVORIN CALCIUM
     Dosage: 200 MG/M2, Q2WEEKS
     Route: 041
     Dates: start: 20150122, end: 20150122
  9. PANITUMUMAB [Suspect]
     Active Substance: PANITUMUMAB
     Indication: COLON CANCER
     Dosage: 6 MG/KG, Q2WEEKS
     Route: 041
     Dates: start: 20141208, end: 20141225
  10. PANITUMUMAB [Suspect]
     Active Substance: PANITUMUMAB
     Dosage: 4.8 MG/KG, Q2WEEKS
     Route: 041
     Dates: start: 20150122, end: 20150122
  11. 5-FU                               /00098801/ [Concomitant]
     Active Substance: FLUOROURACIL
     Dosage: 400 MG/M2, Q2WEEKS
     Route: 040
     Dates: start: 20150212, end: 20150212
  12. PANITUMUMAB [Suspect]
     Active Substance: PANITUMUMAB
     Dosage: 4.8 MG/KG, Q2WEEKS
     Route: 041
     Dates: start: 20150212, end: 20150212
  13. 5-FU                               /00098801/ [Concomitant]
     Active Substance: FLUOROURACIL
     Dosage: 2400 MG/M2, Q2WEEKS
     Route: 041
     Dates: start: 20141208, end: 20141225
  14. CALCIUM LEVOFOLINATE [Concomitant]
     Active Substance: LEVOLEUCOVORIN CALCIUM
     Dosage: 200 MG/M2, Q2WEEKS
     Route: 041
     Dates: start: 20150212, end: 20150212
  15. PANITUMUMAB [Suspect]
     Active Substance: PANITUMUMAB
     Dosage: 4.8 MG/KG, Q2WEEKS
     Route: 041
     Dates: start: 20150305, end: 20150319
  16. 5-FU                               /00098801/ [Concomitant]
     Active Substance: FLUOROURACIL
     Dosage: 400 MG/M2, Q2WEEKS
     Route: 040
     Dates: start: 20150305, end: 20150305
  17. OXALIPLATIN. [Concomitant]
     Active Substance: OXALIPLATIN
     Dosage: 85 MG/M2, Q2WEEKS
     Route: 041
     Dates: start: 20150122, end: 20150122
  18. OXALIPLATIN. [Concomitant]
     Active Substance: OXALIPLATIN
     Dosage: 85 MG/M2, Q2WEEKS
     Route: 041
     Dates: start: 20150212, end: 20150212
  19. OXALIPLATIN. [Concomitant]
     Active Substance: OXALIPLATIN
     Dosage: 85 MG/M2, Q2WEEKS
     Route: 041
     Dates: start: 20150305, end: 20150305
  20. OXALIPLATIN. [Concomitant]
     Active Substance: OXALIPLATIN
     Dosage: 9 MG/M2, Q2WEEKS
     Route: 041
     Dates: start: 20150319, end: 20150319
  21. CALCIUM LEVOFOLINATE [Concomitant]
     Active Substance: LEVOLEUCOVORIN CALCIUM
     Dosage: 200 MG/M2, Q2WEEKS
     Route: 041
     Dates: start: 20150305, end: 20150305

REACTIONS (2)
  - Hypersensitivity [Recovered/Resolved]
  - Erythema multiforme [Not Recovered/Not Resolved]

NARRATIVE: CASE EVENT DATE: 20141215
